FAERS Safety Report 7592483-3 (Version None)
Quarter: 2011Q3

REPORT INFORMATION
  Report Type: 
  Country: None (occurrence: None)
  Receive Date: 20110706
  Receipt Date: 20110623
  Transmission Date: 20111222
  Serious: Yes (Other)
  Sender: FDA-Public Use
  Company Number: CA-JNJFOC-20110612456

PATIENT
  Sex: Female
  Weight: 62.1 kg

DRUGS (3)
  1. REMICADE [Suspect]
     Indication: CROHN'S DISEASE
     Dosage: 9TH INFUSION
     Route: 042
     Dates: start: 20110623
  2. ESTRADERM [Concomitant]
  3. REMICADE [Suspect]
     Route: 042
     Dates: start: 20100701

REACTIONS (1)
  - JOINT ARTHROPLASTY [None]
